FAERS Safety Report 7113506-1 (Version None)
Quarter: 2010Q4

REPORT INFORMATION
  Report Type: 
  Country: None (occurrence: None)
  Receive Date: 20101119
  Receipt Date: 20101110
  Transmission Date: 20110411
  Serious: No
  Sender: FDA-Public Use
  Company Number: US-PFIZER INC-2010145235

PATIENT
  Sex: Female
  Weight: 93.878 kg

DRUGS (13)
  1. ZITHROMAX [Suspect]
     Indication: BRONCHITIS
     Dosage: 500 MG, 1X/DAY
     Route: 048
     Dates: start: 20101023, end: 20101101
  2. LEVOTHYROXINE [Concomitant]
     Indication: THYROID DISORDER
     Dosage: 0.100 MG, 1X/DAY
  3. PROZAC [Concomitant]
     Indication: DEPRESSION
     Dosage: 20 MG, 1X/DAY
  4. ESTRADIOL [Concomitant]
     Indication: HORMONE REPLACEMENT THERAPY
     Dosage: 0.5 MG, 1X/DAY
     Route: 048
  5. PROVERA [Concomitant]
     Indication: HORMONE REPLACEMENT THERAPY
     Dosage: 2.5 MG, 1X/DAY
     Route: 048
  6. XANAX [Concomitant]
     Dosage: 1 MG, AS NEEDED
     Route: 048
  7. MONTELUKAST SODIUM [Concomitant]
     Indication: LUNG DISORDER
     Dosage: 10 MG, 1X/DAY
     Route: 048
  8. DUONEB [Concomitant]
     Indication: LUNG DISORDER
     Dosage: 2 MG, UNK
     Route: 048
  9. ALBUTEROL [Concomitant]
     Indication: LUNG DISORDER
     Dosage: UNK
  10. NEXIUM [Concomitant]
     Indication: GASTROOESOPHAGEAL REFLUX DISEASE
     Dosage: 40 MG, 1X/DAY
     Route: 048
  11. DEMEROL [Concomitant]
     Indication: MIGRAINE
     Dosage: UNK
  12. LOPRESSOR [Concomitant]
     Indication: BLOOD PRESSURE ABNORMAL
     Dosage: 25 MG, 1X/DAY
  13. WELLBUTRIN [Concomitant]
     Indication: DEPRESSION
     Dosage: 150 MG, 1X/DAY

REACTIONS (1)
  - METRORRHAGIA [None]
